FAERS Safety Report 16541905 (Version 1)
Quarter: 2019Q3

REPORT INFORMATION
  Report Type: Spontaneous
  Country: US (occurrence: US)
  Receive Date: 20190524
  Receipt Date: 20190524
  Transmission Date: 20191004
  Serious: Yes (Death)
  Sender: FDA-Public Use
  Company Number: None

PATIENT
  Age: 54 Year
  Sex: Male

DRUGS (7)
  1. MEKINIST [Suspect]
     Active Substance: TRAMETINIB DIMETHYL SULFOXIDE
     Indication: CHEMOTHERAPY
     Dosage: ?          OTHER DOSE:1 T;?
     Route: 048
     Dates: start: 20190406
  2. IBUPROFEN. [Concomitant]
     Active Substance: IBUPROFEN
  3. XGEVA [Concomitant]
     Active Substance: DENOSUMAB
  4. OXYCODONE [Concomitant]
     Active Substance: OXYCODONE
  5. TYLENOL [Concomitant]
     Active Substance: ACETAMINOPHEN
  6. CALCIUM/D [Concomitant]
  7. FENTANYL DIS [Concomitant]

REACTIONS (1)
  - Death [None]

NARRATIVE: CASE EVENT DATE: 20190523
